FAERS Safety Report 5070909-7 (Version None)
Quarter: 2006Q3

REPORT INFORMATION
  Report Type: 
  Country: None (occurrence: None)
  Receive Date: 20060804
  Receipt Date: 20060727
  Transmission Date: 20061208
  Serious: Yes (Other)
  Sender: FDA-Public Use
  Company Number: NZ-JNJFOC-20060705602

PATIENT
  Age: 30 Year
  Sex: Female

DRUGS (1)
  1. RISPERDAL [Suspect]
     Indication: SCHIZOAFFECTIVE DISORDER
     Dosage: 1 MG ^MANE^ AND 2 MG MID-DAY
     Route: 048

REACTIONS (1)
  - NEUTROPHIL COUNT DECREASED [None]
